FAERS Safety Report 22384351 (Version 1)
Quarter: 2023Q2

REPORT INFORMATION
  Report Type: Spontaneous
  Country: US (occurrence: None)
  Receive Date: 20230527
  Receipt Date: 20230527
  Transmission Date: 20230721
  Serious: Yes (Death)
  Sender: FDA-Public Use
  Company Number: None

PATIENT
  Age: 46 Year
  Sex: Male
  Weight: 132.3 kg

DRUGS (8)
  1. TACROLIMUS [Suspect]
     Active Substance: TACROLIMUS
     Indication: Liver transplant
     Dosage: FREQUENCY : DAILY;?
     Route: 048
     Dates: start: 20230522, end: 20230523
  2. TACROLIMUS [Suspect]
     Active Substance: TACROLIMUS
     Dosage: FREQUENCY : DAILY;?
     Route: 048
     Dates: start: 20230524, end: 20230524
  3. MAGNESIUM OXIDE [Concomitant]
     Active Substance: MAGNESIUM OXIDE
     Dates: end: 20230524
  4. POTASSIUM CHLORIDE [Concomitant]
     Active Substance: POTASSIUM CHLORIDE
     Dates: end: 20230524
  5. SPIRONOLACTONE [Concomitant]
     Active Substance: SPIRONOLACTONE
     Dates: end: 20230524
  6. VITAMIN D [Concomitant]
     Active Substance: VITAMIN D NOS
     Dates: end: 20230524
  7. FOLIC ACID [Concomitant]
     Active Substance: FOLIC ACID
     Dates: end: 20230524
  8. FUROSEMIDE [Concomitant]
     Active Substance: FUROSEMIDE
     Dates: end: 20230524

REACTIONS (3)
  - Hyperkalaemia [None]
  - Complications of transplanted liver [None]
  - Sepsis [None]

NARRATIVE: CASE EVENT DATE: 20230524
